FAERS Safety Report 19949657 (Version 1)
Quarter: 2021Q4

REPORT INFORMATION
  Report Type: Spontaneous
  Country: US (occurrence: US)
  Receive Date: 20211012
  Receipt Date: 20211012
  Transmission Date: 20220303
  Serious: Yes (Death)
  Sender: FDA-Public Use
  Company Number: None

PATIENT
  Age: 69 Year
  Sex: Female
  Weight: 125 kg

DRUGS (1)
  1. CASIRIVIMAB\IMDEVIMAB [Suspect]
     Active Substance: CASIRIVIMAB\IMDEVIMAB

REACTIONS (8)
  - Oxygen saturation decreased [None]
  - Anxiety [None]
  - Dyspnoea [None]
  - Blood lactic acid increased [None]
  - Blood sodium decreased [None]
  - Blood potassium increased [None]
  - Blood chloride decreased [None]
  - Blood glucose increased [None]

NARRATIVE: CASE EVENT DATE: 20211002
